FAERS Safety Report 4562944-X (Version None)
Quarter: 2005Q1

REPORT INFORMATION
  Report Type: 
  Country: None (occurrence: None)
  Receive Date: 20050121
  Receipt Date: 20050107
  Transmission Date: 20050727
  Serious: Yes (Hospitalization)
  Sender: FDA-Public Use
  Company Number: 2005014666

PATIENT
  Age: 74 Year
  Sex: Male

DRUGS (9)
  1. CELECOXIB (CELECOXIB) [Suspect]
     Indication: PAIN
     Dosage: 200 MG (100 MG, 2 IN 1 D), ORAL
     Route: 048
     Dates: start: 20041203, end: 20041208
  2. MORPHINE SULFATE [Concomitant]
  3. ACETAMINOPHEN [Concomitant]
  4. RANITIDINE [Concomitant]
  5. CYCLIZINE (CYCLIZINE) [Concomitant]
  6. LISINOPRIL [Concomitant]
  7. ALFUZOSIN (ALFUZOSIN) [Concomitant]
  8. BENDROFLUMETHIAZIDE         (BENDROFLUMETHIAZIDE) [Concomitant]
  9. ACETYLSALICYLIC ACID SRT [Concomitant]

REACTIONS (1)
  - HAEMATEMESIS [None]
